FAERS Safety Report 10467699 (Version 2)
Quarter: 2014Q4

REPORT INFORMATION
  Report Type: Spontaneous
  Country: DE (occurrence: DE)
  Receive Date: 20140922
  Receipt Date: 20141222
  Transmission Date: 20150528
  Serious: Yes (Life-Threatening, Hospitalization, Other)
  Sender: FDA-Public Use
  Company Number: DE-GLAXOSMITHKLINE-D0085330A

PATIENT
  Age: 55 Year
  Sex: Male

DRUGS (8)
  1. BUDESONID EASYHALER [Concomitant]
  2. CALCIUM [Concomitant]
     Active Substance: CALCIUM
  3. VITAMIN D3 [Concomitant]
     Active Substance: CHOLECALCIFEROL
  4. MARCUMAR [Concomitant]
     Active Substance: PHENPROCOUMON
     Route: 048
     Dates: start: 2001
  5. CONTRAST MEDIUM [Suspect]
     Active Substance: UNSPECIFIED INGREDIENT
     Indication: SCAN MYOCARDIAL PERFUSION
     Route: 048
  6. IMODIUM [Concomitant]
     Active Substance: LOPERAMIDE HYDROCHLORIDE
     Route: 048
  7. ELOBACT [Suspect]
     Active Substance: CEFUROXIME AXETIL
     Indication: INFLUENZA
     Dosage: 250 MG, UNK
     Route: 048
     Dates: start: 20140801, end: 20140806
  8. HEPARIN [Concomitant]
     Active Substance: HEPARIN SODIUM

REACTIONS (12)
  - Aplastic anaemia [Unknown]
  - Leukopenia [Recovering/Resolving]
  - White blood cell count decreased [Not Recovered/Not Resolved]
  - Neutropenia [Recovering/Resolving]
  - Platelet count decreased [Not Recovered/Not Resolved]
  - Eosinophilia [Not Recovered/Not Resolved]
  - Gamma-glutamyltransferase increased [Recovered/Resolved]
  - Neutrophil count decreased [Unknown]
  - Therapeutic response decreased [Unknown]
  - Hepatic enzyme increased [Not Recovered/Not Resolved]
  - Pancytopenia [Recovering/Resolving]
  - Eosinophil count increased [Unknown]

NARRATIVE: CASE EVENT DATE: 2014
